FAERS Safety Report 7744099 (Version 6)
Quarter: 2014Q1

REPORT INFORMATION
  Report Type: Spontaneous
  Country: US (occurrence: US)
  Receive Date: 20101230
  Receipt Date: 20140306
  Transmission Date: 20141002
  Serious: Yes (Hospitalization)
  Sender: FDA-Public Use
  Company Number: US-B.I. PHARMACEUTICALS,INC./RIDGEFIELD-2010-BP-14172BP

PATIENT
  Age: 81 Year
  Sex: Female
  Weight: 83.01 kg

DRUGS (16)
  1. PRADAXA [Suspect]
     Indication: ANTICOAGULANT THERAPY
     Dosage: 300 MG
     Route: 048
     Dates: start: 20101115, end: 20120813
  2. PRADAXA [Suspect]
     Indication: ATRIAL FIBRILLATION
  3. SYNTHROID [Concomitant]
     Indication: HYPOTHYROIDISM
     Dosage: 75 MCG
     Route: 048
  4. CALCIUM [Concomitant]
     Indication: PROPHYLAXIS
     Route: 065
  5. METOPROLOL [Concomitant]
     Indication: HYPERTENSION
     Dosage: 50 MG
     Route: 048
  6. LASIX [Concomitant]
     Indication: FLUID RETENTION
     Dosage: 40 MG
     Route: 065
  7. LISINOPRIL [Concomitant]
     Indication: HYPERTENSION
     Dosage: 2.5 MG
     Route: 065
  8. KLOR-CON [Concomitant]
     Indication: PROPHYLAXIS
     Dosage: 10 MEQ
     Route: 048
  9. VITAMIN D [Concomitant]
     Indication: PROPHYLAXIS
     Route: 065
  10. ASA [Concomitant]
     Indication: PROPHYLAXIS
     Dosage: 81 MG
     Route: 048
  11. INSULIN [Concomitant]
     Indication: DIABETES MELLITUS
     Route: 065
  12. LORAZEPAM [Concomitant]
     Indication: SLEEP DISORDER
     Dosage: 1 MG
     Route: 048
  13. ALLOPURINOL [Concomitant]
     Dosage: 100 MG
     Route: 048
  14. CRESTOR [Concomitant]
     Dosage: 10 MG
     Route: 048
  15. NOVOLIN INJECTION [Concomitant]
     Route: 058
  16. TRICOR [Concomitant]
     Dosage: 145 MG
     Route: 048

REACTIONS (7)
  - Lower gastrointestinal haemorrhage [Recovered/Resolved]
  - Coagulopathy [Recovered/Resolved]
  - Haemorrhagic anaemia [Unknown]
  - Haematoma [Not Recovered/Not Resolved]
  - Haemorrhage subcutaneous [Not Recovered/Not Resolved]
  - Contusion [Not Recovered/Not Resolved]
  - Epistaxis [Unknown]
